FAERS Safety Report 10177348 (Version 1)
Quarter: 2014Q2

REPORT INFORMATION
  Report Type: Spontaneous
  Country: US (occurrence: US)
  Receive Date: 20140516
  Receipt Date: 20140516
  Transmission Date: 20141212
  Serious: No
  Sender: FDA-Public Use
  Company Number: US-009507513-1405USA006969

PATIENT
  Age: 7 Year
  Sex: Male

DRUGS (4)
  1. CLARITIN CHEWABLE TABLETS [Suspect]
     Indication: SEASONAL ALLERGY
     Dosage: UNK, UNKNOWN
     Route: 048
  2. CLARITIN CHEWABLE TABLETS [Suspect]
     Indication: RHINORRHOEA
  3. CLARITIN CHEWABLE TABLETS [Suspect]
     Indication: LACRIMATION INCREASED
  4. CLARITIN CHEWABLE TABLETS [Suspect]
     Indication: EAR CONGESTION

REACTIONS (1)
  - Drug ineffective [Unknown]
